FAERS Safety Report 6687862-2 (Version None)
Quarter: 2010Q2

REPORT INFORMATION
  Report Type: 
  Country: None (occurrence: None)
  Receive Date: 20100420
  Receipt Date: 20100412
  Transmission Date: 20101027
  Serious: Yes (Hospitalization, Other)
  Sender: FDA-Public Use
  Company Number: US-ASTRAZENECA-2007UW11937

PATIENT
  Age: 9741 Day
  Sex: Female
  Weight: 64.4 kg

DRUGS (6)
  1. SEROQUEL [Suspect]
     Indication: SLEEP DISORDER
     Route: 048
     Dates: start: 20050822, end: 20070327
  2. SEROQUEL [Suspect]
     Indication: BIPOLAR DISORDER
     Route: 048
     Dates: start: 20050822, end: 20070327
  3. SEROQUEL [Suspect]
     Indication: DEPRESSION
     Route: 048
     Dates: start: 20050822, end: 20070327
  4. COMTREX [Concomitant]
  5. LEXAPRO [Concomitant]
     Dates: start: 20060329
  6. EXCEDRIN (MIGRAINE) [Concomitant]
     Dates: start: 20060328

REACTIONS (8)
  - ABDOMINAL PAIN [None]
  - ARTHROPATHY [None]
  - DIARRHOEA [None]
  - ENDOMETRIAL ABLATION [None]
  - HYPERGLYCAEMIA [None]
  - ILL-DEFINED DISORDER [None]
  - PANCREATITIS ACUTE [None]
  - WEIGHT DECREASED [None]
